FAERS Safety Report 7115066-8 (Version None)
Quarter: 2010Q4

REPORT INFORMATION
  Report Type: 
  Country: None (occurrence: None)
  Receive Date: 20101122
  Receipt Date: 20101108
  Transmission Date: 20110411
  Serious: Yes (Hospitalization)
  Sender: FDA-Public Use
  Company Number: DE-JNJFOC-20101102004

PATIENT
  Age: 69 Year
  Sex: Male
  Weight: 95.5 kg

DRUGS (15)
  1. HALDOL DECANOAT [Suspect]
     Indication: ILL-DEFINED DISORDER
     Route: 030
     Dates: start: 20090826
  2. HALDOL DECANOAT [Suspect]
     Route: 030
     Dates: start: 20090826
  3. HALDOL DECANOAT [Suspect]
     Route: 030
     Dates: start: 20090826
  4. SEROQUEL [Suspect]
     Indication: ILL-DEFINED DISORDER
     Route: 048
     Dates: start: 20090729
  5. SEROQUEL [Suspect]
     Route: 048
     Dates: start: 20090729
  6. SEROQUEL [Suspect]
     Route: 048
     Dates: start: 20090729
  7. SEROQUEL [Suspect]
     Route: 048
     Dates: start: 20090729
  8. SEROQUEL [Suspect]
     Route: 048
     Dates: start: 20090729
  9. SEROQUEL [Suspect]
     Route: 048
     Dates: start: 20090729
  10. SEROQUEL [Suspect]
     Route: 048
     Dates: start: 20090729
  11. SEROQUEL [Suspect]
     Route: 048
     Dates: start: 20090729
  12. ERGENYL [Suspect]
     Indication: ILL-DEFINED DISORDER
     Route: 048
     Dates: start: 20090812, end: 20100608
  13. ERGENYL [Suspect]
     Route: 048
     Dates: start: 20090812, end: 20100608
  14. ERGENYL [Suspect]
     Route: 048
     Dates: start: 20090812, end: 20100608
  15. DELIX [Concomitant]
     Route: 048
     Dates: start: 20090701

REACTIONS (6)
  - ACTIVITIES OF DAILY LIVING IMPAIRED [None]
  - ASTHENIA [None]
  - EATING DISORDER [None]
  - HYPOKINESIA [None]
  - LETHARGY [None]
  - TREMOR [None]
